FAERS Safety Report 4962552-2 (Version None)
Quarter: 2006Q1

REPORT INFORMATION
  Report Type: 
  Country: None (occurrence: None)
  Receive Date: 20060201
  Receipt Date: 20051120
  Transmission Date: 20060701
  Serious: No
  Sender: FDA-Public Use
  Company Number: 2005PV004567

PATIENT
  Sex: Female

DRUGS (2)
  1. BYETTA [Suspect]
     Dosage: SC
     Route: 058
     Dates: start: 20050101
  2. PLAQUENIL [Concomitant]

REACTIONS (1)
  - ARTHRALGIA [None]
